FAERS Safety Report 6958786-8 (Version None)
Quarter: 2010Q3

REPORT INFORMATION
  Report Type: 
  Country: None (occurrence: None)
  Receive Date: 20100831
  Receipt Date: 20100819
  Transmission Date: 20110219
  Serious: Yes (Hospitalization)
  Sender: FDA-Public Use
  Company Number: PHHY2010AU55305

PATIENT
  Sex: Male

DRUGS (2)
  1. CLOZARIL [Suspect]
     Route: 048
  2. CLOZARIL [Suspect]
     Dosage: DOSE DECREASED BY HALF
     Route: 048

REACTIONS (1)
  - INFECTION [None]
